FAERS Safety Report 5450243-3 (Version None)
Quarter: 2007Q3

REPORT INFORMATION
  Report Type: 
  Country: None (occurrence: None)
  Receive Date: 20070912
  Receipt Date: 20070831
  Transmission Date: 20080115
  Serious: Yes (Other)
  Sender: FDA-Public Use
  Company Number: US-PFIZER INC-2005088944

PATIENT
  Sex: Male
  Weight: 141.5 kg

DRUGS (8)
  1. XANAX [Suspect]
     Indication: GENERALISED ANXIETY DISORDER
     Route: 048
  2. XANAX XR [Suspect]
     Route: 048
  3. TENORMIN [Concomitant]
  4. DYAZIDE [Concomitant]
  5. ACIPHEX [Concomitant]
  6. SYNTHROID [Concomitant]
  7. TRICOR [Concomitant]
  8. SEROQUEL [Concomitant]

REACTIONS (8)
  - ANXIETY [None]
  - BLOOD CHOLESTEROL INCREASED [None]
  - CARDIAC DISORDER [None]
  - DRUG DEPENDENCE [None]
  - DRUG INEFFECTIVE [None]
  - GENERAL PHYSICAL HEALTH DETERIORATION [None]
  - HYPERTENSION [None]
  - THYROID DISORDER [None]
